FAERS Safety Report 18208492 (Version 2)
Quarter: 2020Q3

REPORT INFORMATION
  Report Type: Spontaneous
  Country: GB (occurrence: GB)
  Receive Date: 20200828
  Receipt Date: 20200929
  Transmission Date: 20201103
  Serious: Yes (Other)
  Sender: FDA-Public Use
  Company Number: GB-ABBVIE-20K-167-3544069-00

PATIENT
  Age: 65 Year
  Sex: Male
  Weight: 82.2 kg

DRUGS (9)
  1. AZACITIDINE. [Suspect]
     Active Substance: AZACITIDINE
     Dosage: SECOND CYCLE
     Route: 065
     Dates: start: 20200713, end: 20200721
  2. ACICLOVIR [Concomitant]
     Active Substance: ACYCLOVIR
     Indication: PROPHYLAXIS
     Route: 048
  3. AZACITIDINE. [Suspect]
     Active Substance: AZACITIDINE
     Indication: ACUTE MYELOID LEUKAEMIA
     Dosage: FIRST CYCLE
     Route: 065
     Dates: start: 20200504, end: 20200512
  4. VENETOCLAX. [Suspect]
     Active Substance: VENETOCLAX
     Dosage: SECOND CYCLE
     Route: 048
     Dates: start: 20200505, end: 20200505
  5. VENETOCLAX. [Suspect]
     Active Substance: VENETOCLAX
     Route: 048
     Dates: start: 20200713, end: 20200801
  6. POSACONAZOLE [Concomitant]
     Active Substance: POSACONAZOLE
     Indication: PRODUCT USED FOR UNKNOWN INDICATION
     Route: 048
     Dates: start: 20200504, end: 20200531
  7. VENETOCLAX. [Suspect]
     Active Substance: VENETOCLAX
     Route: 048
     Dates: start: 20200506, end: 20200506
  8. VENETOCLAX. [Suspect]
     Active Substance: VENETOCLAX
     Indication: ACUTE MYELOID LEUKAEMIA
     Dosage: FIRST CYCLE
     Route: 048
     Dates: start: 20200504, end: 20200504
  9. VENETOCLAX. [Suspect]
     Active Substance: VENETOCLAX
     Route: 048
     Dates: start: 20200507, end: 20200531

REACTIONS (1)
  - Nephropathy toxic [Not Recovered/Not Resolved]

NARRATIVE: CASE EVENT DATE: 20200603
